FAERS Safety Report 7612111-8 (Version None)
Quarter: 2011Q3

REPORT INFORMATION
  Report Type: 
  Country: None (occurrence: None)
  Receive Date: 20110715
  Receipt Date: 20110711
  Transmission Date: 20111222
  Serious: Yes (Death, Other)
  Sender: FDA-Public Use
  Company Number: GB-ELI_LILLY_AND_COMPANY-GB201104004123

PATIENT
  Age: 49 Year
  Sex: Male
  Weight: 103 kg

DRUGS (6)
  1. BYETTA [Suspect]
     Indication: TYPE 2 DIABETES MELLITUS
     Dosage: UNK, UNKNOWN
     Route: 058
     Dates: start: 20090709
  2. GLICLAZIDE [Concomitant]
     Dosage: 80 MG, BID
  3. RANITIDINE [Concomitant]
     Dosage: 150 MG, BID
     Route: 048
  4. BYETTA [Suspect]
     Dosage: 10 UG, UNK
     Route: 058
     Dates: end: 20100201
  5. BYETTA [Suspect]
     Dosage: 10 UG, BID
     Route: 030
  6. METFORMIN HCL [Concomitant]
     Dosage: 850 MG, UNK

REACTIONS (2)
  - DIARRHOEA [None]
  - OESOPHAGEAL ADENOCARCINOMA [None]
